FAERS Safety Report 10667477 (Version 1)
Quarter: 2014Q4

REPORT INFORMATION
  Report Type: Spontaneous
  Country: CN (occurrence: None)
  Receive Date: 20141218
  Receipt Date: 20141218
  Transmission Date: 20150529
  Serious: Yes (Other)
  Sender: FDA-Public Use
  Company Number: CN-ZYDUS-006026

PATIENT
  Age: 53 Year
  Sex: Female

DRUGS (1)
  1. INDOMETHACIN. [Suspect]
     Active Substance: INDOMETHACIN

REACTIONS (6)
  - Chronic kidney disease [None]
  - Hepatotoxicity [None]
  - Nephropathy toxic [None]
  - IgA nephropathy [None]
  - Hepatitis acute [None]
  - Tubulointerstitial nephritis [None]
